FAERS Safety Report 20664294 (Version 2)
Quarter: 2022Q2

REPORT INFORMATION
  Report Type: Report from Study
  Country: PL (occurrence: PL)
  Receive Date: 20220401
  Receipt Date: 20220426
  Transmission Date: 20220721
  Serious: Yes (Life-Threatening, Hospitalization)
  Sender: FDA-Public Use
  Company Number: PL-JNJFOC-20220359609

PATIENT
  Age: 17 Year
  Sex: Male
  Weight: 98.1 kg

DRUGS (12)
  1. GOLIMUMAB [Suspect]
     Active Substance: GOLIMUMAB
     Indication: Colitis ulcerative
     Route: 065
  2. MESALAMINE [Concomitant]
     Active Substance: MESALAMINE
     Indication: Colitis ulcerative
     Route: 048
     Dates: start: 20210910
  3. VITAMIN D3 [Concomitant]
     Active Substance: CHOLECALCIFEROL
     Indication: Vitamin D deficiency
     Route: 048
     Dates: start: 20210913
  4. CROHNAX [Concomitant]
     Indication: Colitis ulcerative
     Route: 054
     Dates: start: 20210921
  5. PILARIX [ALLANTOIN;BUTYROSPERMUM PARKII;PANTHENOL;SALICYLIC ACID;UREA] [Concomitant]
     Indication: Keratosis pilaris
     Dosage: 1
     Route: 061
     Dates: start: 20211028
  6. DUSPATALIN RETARD [Concomitant]
     Indication: Colitis ulcerative
     Route: 048
     Dates: start: 20211028, end: 20220323
  7. IMURAN [Concomitant]
     Active Substance: AZATHIOPRINE
     Indication: Colitis ulcerative
     Route: 048
     Dates: start: 20220124
  8. ENEMA (PHOSPHATES) [Concomitant]
     Indication: Sigmoidoscopy
     Route: 054
     Dates: start: 20220316, end: 20220316
  9. MEPERIDINE [Concomitant]
     Active Substance: MEPERIDINE
     Indication: Sigmoidoscopy
     Route: 042
     Dates: start: 20220317, end: 20220317
  10. SODIUM CHLORIDE [Concomitant]
     Active Substance: SODIUM CHLORIDE
     Indication: Sigmoidoscopy
     Route: 054
     Dates: start: 20220317, end: 20220317
  11. SOPODORM [Concomitant]
     Indication: Sigmoidoscopy
     Route: 042
     Dates: start: 20220317, end: 20220317
  12. DEBUTIR [Concomitant]
     Indication: Colitis ulcerative
     Route: 048
     Dates: start: 20220321

REACTIONS (1)
  - COVID-19 [Recovering/Resolving]

NARRATIVE: CASE EVENT DATE: 20220323
